FAERS Safety Report 8582272-5 (Version None)
Quarter: 2012Q3

REPORT INFORMATION
  Report Type: 
  Country: None (occurrence: None)
  Receive Date: 20120809
  Receipt Date: 20120725
  Transmission Date: 20120928
  Serious: No
  Sender: FDA-Public Use
  Company Number: US-ASTRAZENECA-2012SE52791

PATIENT
  Sex: Male
  Weight: 70.3 kg

DRUGS (6)
  1. NEXIUM [Suspect]
     Indication: BARRETT'S OESOPHAGUS
     Route: 048
  2. DIOVAN [Concomitant]
     Indication: HYPERTENSION
  3. DETROL [Concomitant]
     Indication: HYPERTONIC BLADDER
  4. ASA BABY ASPIRIN [Concomitant]
  5. SUPPLEMENTS [Concomitant]
  6. CRESTOR [Suspect]
     Route: 048

REACTIONS (2)
  - OFF LABEL USE [None]
  - BLOOD GLUCOSE INCREASED [None]
